FAERS Safety Report 8471871-7 (Version None)
Quarter: 2012Q2

REPORT INFORMATION
  Report Type: 
  Country: None (occurrence: None)
  Receive Date: 20120627
  Receipt Date: 20120619
  Transmission Date: 20120825
  Serious: Yes (Hospitalization)
  Sender: FDA-Public Use
  Company Number: US-BAYER-2012-034619

PATIENT
  Age: 15 Year
  Sex: Female
  Weight: 95.238 kg

DRUGS (9)
  1. MINOCYCLINE HCL [Concomitant]
     Indication: ANTIBIOTIC THERAPY
     Dosage: 100 MG, UNK
     Route: 048
     Dates: start: 20080929
  2. YAZ [Suspect]
     Indication: ACNE
     Dosage: UNK
     Dates: start: 20080101, end: 20081001
  3. DROSPIRENONE AND ETHINYL ESTRADIOL [Suspect]
     Indication: ACNE
     Dosage: UNK
     Dates: start: 20081001, end: 20081201
  4. MINOCYCLINE HCL [Concomitant]
     Indication: ACNE
     Dosage: UNK
     Dates: start: 20081219
  5. FEXOFENADINE HYDROCHLORIDE [Concomitant]
     Dosage: 180 MG, UNK
     Route: 048
     Dates: start: 20080929
  6. FEXOFENADINE HYDROCHLORIDE [Concomitant]
     Dosage: 180 MG, UNK
     Route: 048
     Dates: start: 20081113
  7. ALLEGRA [Concomitant]
     Indication: MULTIPLE ALLERGIES
     Dosage: UNK
     Dates: start: 20081219
  8. MINOCYCLINE HCL [Concomitant]
     Dosage: 100 MG, UNK
     Route: 048
     Dates: start: 20081113
  9. HYDROCODONE BITARTRATE + ACETAMINOPHEN [Concomitant]
     Dosage: 5-500 MG TABLET
     Route: 048
     Dates: start: 20081215

REACTIONS (1)
  - DEEP VEIN THROMBOSIS [None]
